FAERS Safety Report 20225963 (Version 5)
Quarter: 2022Q1

REPORT INFORMATION
  Report Type: Report from Study
  Country: US (occurrence: US)
  Receive Date: 20211224
  Receipt Date: 20220311
  Transmission Date: 20220423
  Serious: No
  Sender: FDA-Public Use
  Company Number: US-NOVARTISTESTPH-NVSC2021US295189

PATIENT
  Sex: Female

DRUGS (2)
  1. PIQRAY [Suspect]
     Active Substance: ALPELISIB
     Indication: Breast cancer
     Dosage: 150 MG, QD
     Route: 048
     Dates: start: 20211215
  2. PIQRAY [Suspect]
     Active Substance: ALPELISIB
     Dosage: 300 MG, QD (2 TABLET A DAY)
     Route: 048

REACTIONS (10)
  - Hair growth abnormal [Unknown]
  - Product use issue [Unknown]
  - Decreased appetite [Unknown]
  - Weight decreased [Unknown]
  - Dry skin [Unknown]
  - Urticaria [Unknown]
  - Rash [Unknown]
  - Pruritus [Unknown]
  - Gingival discomfort [Recovered/Resolved]
  - Alopecia [Unknown]
